FAERS Safety Report 13102386 (Version 1)
Quarter: 2017Q1

REPORT INFORMATION
  Report Type: Spontaneous
  Country: US (occurrence: US)
  Receive Date: 20170110
  Receipt Date: 20170110
  Transmission Date: 20170428
  Serious: No
  Sender: FDA-Public Use
  Company Number: US-ALLERGAN-1658048US

PATIENT
  Sex: Female

DRUGS (2)
  1. PRED FORTE [Suspect]
     Active Substance: PREDNISOLONE ACETATE
     Indication: CATARACT OPERATION
     Dosage: 1 GTT, QID
     Route: 047
     Dates: start: 201603
  2. PRED FORTE [Suspect]
     Active Substance: PREDNISOLONE ACETATE
     Dosage: UNK
     Route: 047
     Dates: start: 201604

REACTIONS (2)
  - Wrong technique in product usage process [Unknown]
  - Vitreous floaters [Not Recovered/Not Resolved]
